FAERS Safety Report 9171678 (Version 2)
Quarter: 2013Q2

REPORT INFORMATION
  Report Type: Spontaneous
  Country: IT (occurrence: IT)
  Receive Date: 20130319
  Receipt Date: 20130409
  Transmission Date: 20140414
  Serious: No
  Sender: FDA-Public Use
  Company Number: IT-GILEAD-2013-0071839

PATIENT
  Age: 37 Year
  Sex: Male

DRUGS (1)
  1. VIREAD [Suspect]
     Indication: CHRONIC HEPATITIS B
     Dosage: UNK
     Route: 048
     Dates: start: 201201

REACTIONS (1)
  - Enchondroma [Not Recovered/Not Resolved]
